FAERS Safety Report 7758850-X (Version None)
Quarter: 2011Q3

REPORT INFORMATION
  Report Type: 
  Country: None (occurrence: None)
  Receive Date: 20110825
  Receipt Date: 20110524
  Transmission Date: 20111222
  Serious: Yes (Hospitalization)
  Sender: FDA-Public Use
  Company Number: 328942

PATIENT
  Age: 64 Year
  Sex: Male
  Weight: 107.9 kg

DRUGS (4)
  1. VICTOZA [Suspect]
     Indication: PRODUCT USED FOR UNKNOWN INDICATION
     Dosage: SUBCUTANEOUS
     Route: 058
  2. LISINOPRIL HCT /01613901/ (HYDROCHLOROTHIAZIDE, LISINOPRIL DIHYDRATE) [Concomitant]
  3. CARVEDILOL [Concomitant]
  4. METFORMIN HCL [Concomitant]

REACTIONS (1)
  - PANCREATITIS ACUTE [None]
